FAERS Safety Report 23798412 (Version 1)
Quarter: 2024Q2

REPORT INFORMATION
  Report Type: Spontaneous
  Country: CN (occurrence: CN)
  Receive Date: 20240430
  Receipt Date: 20240430
  Transmission Date: 20240716
  Serious: Yes (Other)
  Sender: FDA-Public Use
  Company Number: CN-BAYER-2024A063736

PATIENT
  Age: 60 Year
  Sex: Female
  Weight: 52 kg

DRUGS (2)
  1. ULTRAVIST [Suspect]
     Active Substance: IOPROMIDE
     Indication: Computerised tomogram thorax
     Dosage: 75 ML, ONCE, PUMPING
     Dates: start: 20240425, end: 20240425
  2. ULTRAVIST [Suspect]
     Active Substance: IOPROMIDE
     Indication: Lung disorder

REACTIONS (4)
  - Pruritus [Recovering/Resolving]
  - Skin warm [Recovered/Resolved]
  - Urticaria [Recovering/Resolving]
  - Respiratory rate increased [None]

NARRATIVE: CASE EVENT DATE: 20240425
